FAERS Safety Report 20705644 (Version 1)
Quarter: 2022Q2

REPORT INFORMATION
  Report Type: Spontaneous
  Country: PH (occurrence: None)
  Receive Date: 20220413
  Receipt Date: 20220413
  Transmission Date: 20220721
  Serious: Yes (Hospitalization, Other)
  Sender: FDA-Public Use
  Company Number: PH-ROCHE-3030580

PATIENT

DRUGS (2)
  1. MABTHERA [Suspect]
     Active Substance: RITUXIMAB
     Indication: Non-Hodgkin^s lymphoma
     Dosage: DOSING: 600-700MG?CYCLE 1: CHEMO AND RITUXIMAB
     Route: 042
     Dates: start: 20220211
  2. MABTHERA [Suspect]
     Active Substance: RITUXIMAB
     Dosage: 6 CYCLES
     Route: 042
     Dates: start: 2020

REACTIONS (9)
  - Myocardial infarction [Unknown]
  - Blood pressure increased [Unknown]
  - Hypersensitivity [Unknown]
  - Ejection fraction decreased [Unknown]
  - Dyspnoea [Unknown]
  - Heart rate increased [Unknown]
  - Cardiac failure [Unknown]
  - Cardiomyopathy [Unknown]
  - Anaphylactic reaction [Unknown]
